FAERS Safety Report 18229106 (Version 2)
Quarter: 2020Q4

REPORT INFORMATION
  Report Type: Spontaneous
  Country: GB (occurrence: GB)
  Receive Date: 20200903
  Receipt Date: 20201014
  Transmission Date: 20210113
  Serious: Yes (Death)
  Sender: FDA-Public Use
  Company Number: GB-ROCHE-2670985

PATIENT
  Age: 73 Year
  Sex: Male
  Weight: 75.8 kg

DRUGS (6)
  1. OMEPRAZOLE. [Concomitant]
     Active Substance: OMEPRAZOLE
     Indication: PROPHYLAXIS AGAINST GASTROINTESTINAL ULCER
  2. ACTILYSE [Suspect]
     Active Substance: ALTEPLASE
     Indication: PULMONARY EMBOLISM
     Dosage: 2 X 50MG GIVEN AT 14:30, 50MG BOLUS THEN 50MG OVER 1 HOUR
     Route: 042
     Dates: start: 20200710, end: 20200710
  3. NAPROXEN. [Concomitant]
     Active Substance: NAPROXEN
     Indication: PRODUCT USED FOR UNKNOWN INDICATION
  4. TINZAPARIN [Suspect]
     Active Substance: TINZAPARIN
     Indication: PULMONARY EMBOLISM
     Dosage: EACH EVENING (CORRECT DOSE FOR WEIGHT AND RENAL FUNCTION)
     Route: 058
     Dates: start: 20200711, end: 20200714
  5. RIVAROXABAN [Suspect]
     Active Substance: RIVAROXABAN
     Indication: PULMONARY EMBOLISM
     Dosage: RECEIVED 1 DOSE WITH CONCURRENT THERAPEUTIC TINZAPARIN CONTINUED
     Route: 048
     Dates: start: 20200713, end: 20200714
  6. HEPARIN [Suspect]
     Active Substance: HEPARIN SODIUM
     Indication: PULMONARY EMBOLISM
     Dosage: STAT
     Route: 042
     Dates: start: 20200710, end: 20200710

REACTIONS (6)
  - Malaise [Fatal]
  - Intra-abdominal haemorrhage [Fatal]
  - Abdominal sepsis [Fatal]
  - Contraindicated product administered [Fatal]
  - Mesenteric haemorrhage [Fatal]
  - Acute kidney injury [Fatal]

NARRATIVE: CASE EVENT DATE: 20200713
